FAERS Safety Report 7158289-4 (Version None)
Quarter: 2010Q4

REPORT INFORMATION
  Report Type: 
  Country: None (occurrence: None)
  Receive Date: 20101214
  Receipt Date: 20101206
  Transmission Date: 20110411
  Serious: Yes (Hospitalization)
  Sender: FDA-Public Use
  Company Number: CA-ABBOTT-10P-028-0684815-00

PATIENT
  Sex: Female
  Weight: 54.48 kg

DRUGS (6)
  1. HUMIRA [Suspect]
     Indication: COLITIS ULCERATIVE
     Route: 058
     Dates: start: 20100503, end: 20101130
  2. HUMIRA [Suspect]
     Route: 058
  3. IMURAN [Concomitant]
     Indication: PRODUCT USED FOR UNKNOWN INDICATION
     Route: 048
  4. PREDNISONE [Concomitant]
     Indication: COLITIS
     Route: 048
     Dates: start: 20101203
  5. APO METRONIDAZOLE [Concomitant]
     Indication: CLOSTRIDIAL INFECTION
     Route: 048
     Dates: start: 20101203
  6. AZATHIOPRINE [Concomitant]
     Indication: COLITIS
     Dates: start: 20090101

REACTIONS (4)
  - ABDOMINAL PAIN [None]
  - PLEURITIC PAIN [None]
  - PULMONARY EMBOLISM [None]
  - VENA CAVA THROMBOSIS [None]
